FAERS Safety Report 18350289 (Version 3)
Quarter: 2023Q4

REPORT INFORMATION
  Report Type: Spontaneous
  Country: US (occurrence: None)
  Receive Date: 20201006
  Receipt Date: 20231208
  Transmission Date: 20240110
  Serious: Yes (Hospitalization, Other)
  Sender: FDA-Public Use
  Company Number: 2020SF27095

PATIENT
  Age: 621 Month
  Sex: Male
  Weight: 117.9 kg

DRUGS (35)
  1. FARXIGA [Suspect]
     Active Substance: DAPAGLIFLOZIN PROPANEDIOL
     Indication: Type 2 diabetes mellitus
     Route: 048
     Dates: start: 201808, end: 201809
  2. FARXIGA [Suspect]
     Active Substance: DAPAGLIFLOZIN PROPANEDIOL
     Indication: Weight decreased
     Route: 048
     Dates: start: 201808, end: 201809
  3. FARXIGA [Suspect]
     Active Substance: DAPAGLIFLOZIN PROPANEDIOL
     Indication: Blood pressure decreased
     Route: 048
     Dates: start: 201808, end: 201809
  4. FARXIGA [Suspect]
     Active Substance: DAPAGLIFLOZIN PROPANEDIOL
     Indication: Type 2 diabetes mellitus
     Dosage: GENERIC
     Route: 048
     Dates: start: 20180823
  5. FARXIGA [Suspect]
     Active Substance: DAPAGLIFLOZIN PROPANEDIOL
     Indication: Weight decreased
     Dosage: GENERIC
     Route: 048
     Dates: start: 20180823
  6. FARXIGA [Suspect]
     Active Substance: DAPAGLIFLOZIN PROPANEDIOL
     Indication: Blood pressure decreased
     Dosage: GENERIC
     Route: 048
     Dates: start: 20180823
  7. FARXIGA [Suspect]
     Active Substance: DAPAGLIFLOZIN PROPANEDIOL
     Indication: Type 2 diabetes mellitus
     Route: 048
     Dates: start: 201808
  8. FARXIGA [Suspect]
     Active Substance: DAPAGLIFLOZIN PROPANEDIOL
     Indication: Weight decreased
     Route: 048
     Dates: start: 201808
  9. FARXIGA [Suspect]
     Active Substance: DAPAGLIFLOZIN PROPANEDIOL
     Indication: Blood pressure decreased
     Route: 048
     Dates: start: 201808
  10. ASPIRIN [Concomitant]
     Active Substance: ASPIRIN
  11. ALBUTEROL [Concomitant]
     Active Substance: ALBUTEROL
     Dates: start: 20090301
  12. CLONIDINE [Concomitant]
     Active Substance: CLONIDINE
     Dates: start: 20171018
  13. DEXILANT [Concomitant]
     Active Substance: DEXLANSOPRAZOLE
     Dates: start: 20160804
  14. ARICEPT [Concomitant]
     Active Substance: DONEPEZIL HYDROCHLORIDE
     Dates: start: 20170303
  15. LEXAPRO [Concomitant]
     Active Substance: ESCITALOPRAM OXALATE
     Dates: start: 20171107
  16. AMARYL [Concomitant]
     Active Substance: GLIMEPIRIDE
     Dates: start: 20180214
  17. HYZAAR [Concomitant]
     Active Substance: HYDROCHLOROTHIAZIDE\LOSARTAN POTASSIUM
     Dates: start: 20170303
  18. MEDROL [Concomitant]
     Active Substance: METHYLPREDNISOLONE
     Dates: start: 20170808
  19. LOPRESSOR [Concomitant]
     Active Substance: METOPROLOL TARTRATE
     Dates: start: 20171018
  20. LONITEN [Concomitant]
     Active Substance: MINOXIDIL
     Dates: start: 20171018
  21. ZOLOFT [Concomitant]
     Active Substance: SERTRALINE HYDROCHLORIDE
  22. JANUMET [Concomitant]
     Active Substance: METFORMIN HYDROCHLORIDE\SITAGLIPTIN PHOSPHATE
     Dates: start: 20180803
  23. CRESTOR [Concomitant]
     Active Substance: ROSUVASTATIN CALCIUM
     Dates: start: 20171018
  24. POTASSIUM CHLORIDE [Concomitant]
     Active Substance: POTASSIUM CHLORIDE
  25. PEPCID [Concomitant]
     Active Substance: FAMOTIDINE
  26. SODIUM HYPOCHLORITE [Concomitant]
     Active Substance: SODIUM HYPOCHLORITE
  27. MINOXIDIL [Concomitant]
     Active Substance: MINOXIDIL
  28. SACCHAROMYCES CEREVISIAE [Concomitant]
     Active Substance: SACCHAROMYCES CEREVISIAE
  29. ULTRAM [Concomitant]
     Active Substance: TRAMADOL HYDROCHLORIDE
  30. LANTUS [Concomitant]
     Active Substance: INSULIN GLARGINE
  31. HUMALOG [Concomitant]
     Active Substance: INSULIN LISPRO
  32. LEXAPRO [Concomitant]
     Active Substance: ESCITALOPRAM OXALATE
  33. LOSARTAN [Concomitant]
     Active Substance: LOSARTAN
  34. VITAMIN B12 [Concomitant]
     Active Substance: CYANOCOBALAMIN
  35. GLUCOPHAGE [Concomitant]
     Active Substance: METFORMIN HYDROCHLORIDE

REACTIONS (10)
  - Fournier^s gangrene [Unknown]
  - Rectal abscess [Unknown]
  - Gangrene [Unknown]
  - Necrotising fasciitis [Unknown]
  - Scrotal infection [Unknown]
  - Anal abscess [Unknown]
  - Pain [Unknown]
  - Scar [Unknown]
  - Anal incontinence [Unknown]
  - Nerve injury [Unknown]

NARRATIVE: CASE EVENT DATE: 20180901
